FAERS Safety Report 7632363-8 (Version None)
Quarter: 2011Q3

REPORT INFORMATION
  Report Type: 
  Country: None (occurrence: None)
  Receive Date: 20110725
  Receipt Date: 20100818
  Transmission Date: 20111222
  Serious: No
  Sender: FDA-Public Use
  Company Number: US-BRISTOL-MYERS SQUIBB COMPANY-15245152

PATIENT
  Age: 84 Year
  Sex: Female

DRUGS (4)
  1. VITAMIN D [Concomitant]
  2. VITAMIN B [Concomitant]
  3. AMLODIPINE [Concomitant]
  4. COUMADIN [Suspect]
     Indication: CAROTID ARTERY OCCLUSION
     Dates: start: 19880101

REACTIONS (1)
  - RASH PRURITIC [None]
